FAERS Safety Report 17846835 (Version 2)
Quarter: 2020Q3

REPORT INFORMATION
  Report Type: Report from Study
  Country: US (occurrence: US)
  Receive Date: 20200601
  Receipt Date: 20200921
  Transmission Date: 20201103
  Serious: Yes (Hospitalization, Other)
  Sender: FDA-Public Use
  Company Number: US-MYLANLABS-2020M1052970

PATIENT
  Age: 8 Year
  Sex: Male
  Weight: 30.4 kg

DRUGS (4)
  1. CYCLOPHOSPHAMIDE. [Suspect]
     Active Substance: CYCLOPHOSPHAMIDE
     Indication: EMBRYONAL RHABDOMYOSARCOMA
     Dosage: UNK, CYCLE (TOTAL DOSE 1350 MG)
     Route: 042
     Dates: start: 20200221, end: 20200221
  2. TEMSIROLIMUS. [Suspect]
     Active Substance: TEMSIROLIMUS
     Indication: EMBRYONAL RHABDOMYOSARCOMA
     Dosage: UNK, CYCLE (TOTAL DOSE 51 MG)
     Route: 042
     Dates: start: 20200221, end: 20200306
  3. VINCRISTINE SULFATE. [Suspect]
     Active Substance: VINCRISTINE SULFATE
     Indication: EMBRYONAL RHABDOMYOSARCOMA
     Dosage: UNK, CYCLE (TOTAL DOSE 5.1 MG)
     Route: 042
     Dates: start: 20200221, end: 20200306
  4. DACTINOMYCIN [Suspect]
     Active Substance: DACTINOMYCIN
     Indication: EMBRYONAL RHABDOMYOSARCOMA
     Dosage: UNK, CYCLE (TOTAL DOSE 1.7 MG)
     Route: 042
     Dates: start: 20200221, end: 20200221

REACTIONS (2)
  - Stomatitis [Recovered/Resolved]
  - Weight decreased [Recovering/Resolving]

NARRATIVE: CASE EVENT DATE: 20200306
